FAERS Safety Report 5568736-7 (Version None)
Quarter: 2007Q4

REPORT INFORMATION
  Report Type: 
  Country: None (occurrence: None)
  Receive Date: 20071220
  Receipt Date: 20061206
  Transmission Date: 20080405
  Serious: No
  Sender: FDA-Public Use
  Company Number: A0630827A

PATIENT
  Age: 72 Year
  Sex: Male

DRUGS (1)
  1. AVODART [Suspect]
     Indication: DRUG USE FOR UNKNOWN INDICATION
     Route: 048
     Dates: start: 20061101

REACTIONS (2)
  - HYPERHIDROSIS [None]
  - NIGHT SWEATS [None]
